FAERS Safety Report 7661959-2 (Version None)
Quarter: 2011Q3

REPORT INFORMATION
  Report Type: 
  Country: None (occurrence: None)
  Receive Date: 20110805
  Receipt Date: 20101202
  Transmission Date: 20111222
  Serious: No
  Sender: FDA-Public Use
  Company Number: US-ABBOTT-10P-163-0689651-00

PATIENT
  Sex: Male
  Weight: 81.72 kg

DRUGS (5)
  1. COUMADIN [Concomitant]
     Indication: ATRIAL FIBRILLATION
     Dosage: MWF, TUES, THURS, SAT, SUN 1.25
     Dates: start: 20060629
  2. ASPIRIN [Concomitant]
     Indication: PRODUCT USED FOR UNKNOWN INDICATION
  3. FENOFIBRATE [Concomitant]
     Indication: BLOOD TRIGLYCERIDES
  4. SIMVASTATIN [Concomitant]
     Indication: BLOOD CHOLESTEROL INCREASED
  5. NIASPAN [Suspect]
     Indication: BLOOD CHOLESTEROL INCREASED
     Route: 048
     Dates: start: 20100401

REACTIONS (3)
  - HEPATIC ENZYME INCREASED [None]
  - BLOOD PRESSURE INCREASED [None]
  - NEPHROLITHIASIS [None]
